FAERS Safety Report 8549773 (Version 4)
Quarter: 2012Q4

REPORT INFORMATION
  Report Type: 
  Country: US (occurrence: US)
  Receive Date: 20120507
  Receipt Date: 20120926
  Transmission Date: 20130627
  Serious: Yes (Death, Hospitalization, Other)
  Sender: FDA-Public Use
  Company Number: PHEH2012US009375

PATIENT
  Age: 45 Year
  Sex: Female

DRUGS (25)
  1. GILENYA [Suspect]
     Indication: RELAPSING-REMITTING MULTIPLE SCLEROSIS
     Dosage: 0.5 mg, QD
     Route: 048
     Dates: start: 20110325, end: 20110715
  2. ARICEPT [Concomitant]
     Indication: MEMORY IMPAIRMENT
     Dosage: 10 mg, QD
     Route: 048
  3. AMPYRA [Concomitant]
     Indication: MULTIPLE SCLEROSIS
     Dosage: 10 mg, TID
  4. IBUPROFEN [Concomitant]
     Indication: PAIN
     Dosage: 200 ml, Q6H
  5. MOM SUSPENSION [Concomitant]
     Indication: CONSTIPATION
     Dosage: 30 ml, BID
  6. ACETAMINOPHEN [Concomitant]
     Indication: PAIN
     Dosage: 650 mg, Q4H
  7. TRAMADOL [Concomitant]
     Indication: PAIN
     Dosage: 50 mg, QD
  8. XOPENEX [Concomitant]
     Indication: DYSPNOEA
     Dosage: 125 mg, Q4H
  9. XANAX [Concomitant]
     Indication: ANXIETY
     Dosage: 0.5 mg, Q12H
  10. LACTINEX [Concomitant]
     Indication: SUPPLEMENTATION THERAPY
     Dosage: 1 DF, QID
  11. HYDROMORPHONE [Concomitant]
     Indication: PAIN
     Dosage: 1 mg, UNK
  12. ZONEGRAN [Concomitant]
     Indication: TREMOR
     Dosage: 100 mg, QHS
  13. ULTRAM [Concomitant]
     Dosage: 150, UNK
     Route: 048
  14. ZANAFLEX [Concomitant]
     Dosage: 2 mg, BID
     Route: 048
  15. ZOSYN [Concomitant]
     Dosage: 3.375, UNK
     Route: 042
  16. PROTONIX ^PHARMACIA^ [Concomitant]
     Indication: GASTROINTESTINAL DISORDER
  17. OXYCONTIN [Concomitant]
  18. DILAUDID [Concomitant]
     Indication: PAIN
     Route: 042
  19. LASIX [Concomitant]
  20. LOVENOX [Concomitant]
     Dosage: 40, UNK, subcutaneously
     Route: 058
  21. ABILIFY [Concomitant]
     Dosage: 5 mg, QHS
     Route: 048
  22. HYDROCORTISONE [Concomitant]
  23. HYDROCODONE [Concomitant]
     Indication: PAIN
     Route: 042
  24. VANCOMYCIN [Concomitant]
     Dosage: 1 g, Q8H
     Route: 042
  25. MIRALAX [Concomitant]

REACTIONS (76)
  - Multiple sclerosis [Fatal]
  - Urine leukocyte esterase positive [Unknown]
  - Staphylococcal infection [Fatal]
  - Urinary tract infection [Recovering/Resolving]
  - Blood urine present [Unknown]
  - Urine output decreased [Unknown]
  - Protein urine present [Unknown]
  - Urine abnormality [Unknown]
  - Blood urea increased [Unknown]
  - Septic shock [Unknown]
  - Lethargy [Unknown]
  - Sepsis [Recovered/Resolved]
  - Escherichia test positive [Unknown]
  - Depressed level of consciousness [Unknown]
  - Neutrophil count increased [Unknown]
  - Hypotension [Unknown]
  - Leukocytosis [Unknown]
  - Pyrexia [Unknown]
  - Depression [Unknown]
  - Pleural effusion [Unknown]
  - Renal failure acute [Recovered/Resolved]
  - Pulmonary oedema [Recovering/Resolving]
  - Pulmonary congestion [Unknown]
  - Pericardial effusion [Unknown]
  - Glomerular filtration rate decreased [Unknown]
  - Abdominal distension [Unknown]
  - Anaemia [Unknown]
  - Osteoarthritis [Unknown]
  - Brain natriuretic peptide increased [Unknown]
  - Creatinine renal clearance decreased [Unknown]
  - Lung consolidation [Unknown]
  - Oedema peripheral [Unknown]
  - C-reactive protein increased [Unknown]
  - Bacterial test positive [Unknown]
  - Mental status changes [Unknown]
  - Cardiomegaly [Unknown]
  - Atelectasis [Unknown]
  - Speech disorder [Unknown]
  - Malaise [Unknown]
  - Rash [Unknown]
  - Visual impairment [Unknown]
  - Confusional state [Unknown]
  - Agitation [Unknown]
  - Hyporesponsive to stimuli [Unknown]
  - Tachypnoea [Unknown]
  - Decubitus ulcer [Unknown]
  - Musculoskeletal pain [Unknown]
  - Blood albumin decreased [Unknown]
  - Hypomagnesaemia [Unknown]
  - Carbon dioxide decreased [Unknown]
  - Haemoglobin decreased [Unknown]
  - Activated partial thromboplastin time prolonged [Unknown]
  - Red cell distribution width increased [Unknown]
  - Blood calcium decreased [Unknown]
  - Rotator cuff syndrome [Unknown]
  - Red blood cell count decreased [Unknown]
  - Prealbumin decreased [Unknown]
  - Nuclear magnetic resonance imaging abnormal [Unknown]
  - Fibrin D dimer increased [Unknown]
  - Oxygen saturation decreased [Recovering/Resolving]
  - Ejection fraction decreased [Unknown]
  - Haematocrit decreased [Unknown]
  - Blood potassium decreased [Unknown]
  - Prothrombin time prolonged [Unknown]
  - Blood creatinine increased [Unknown]
  - Lymphocyte count decreased [Unknown]
  - Hyponatraemia [Unknown]
  - Blood glucose increased [Unknown]
  - Disorientation [Unknown]
  - Tachycardia [Unknown]
  - Platelet count abnormal [Unknown]
  - Malnutrition [Unknown]
  - Asthenia [Unknown]
  - Constipation [Unknown]
  - Diarrhoea [Recovering/Resolving]
  - Drug ineffective [Not Recovered/Not Resolved]
